FAERS Safety Report 19754510 (Version 1)
Quarter: 2021Q3

REPORT INFORMATION
  Report Type: Spontaneous
  Country: US (occurrence: US)
  Receive Date: 20210827
  Receipt Date: 20210827
  Transmission Date: 20211014
  Serious: Yes (Hospitalization)
  Sender: FDA-Public Use
  Company Number: None

PATIENT
  Age: 13 Year
  Sex: Male

DRUGS (5)
  1. PHENERGAN [Concomitant]
     Active Substance: PROMETHAZINE HYDROCHLORIDE
  2. MIRALAX [Concomitant]
     Active Substance: POLYETHYLENE GLYCOL 3350
  3. BACTRIM [Concomitant]
     Active Substance: SULFAMETHOXAZOLE\TRIMETHOPRIM
  4. ZOFRAN [Concomitant]
     Active Substance: ONDANSETRON HYDROCHLORIDE
  5. LEUKINE [Suspect]
     Active Substance: SARGRAMOSTIM
     Indication: ADRENAL GLAND CANCER
     Dosage: ?          OTHER FREQUENCY:DAILY;?
     Route: 058
     Dates: start: 20210723

REACTIONS (2)
  - Thrombotic microangiopathy [None]
  - Body temperature increased [None]
